FAERS Safety Report 11631980 (Version 1)
Quarter: 2015Q4

REPORT INFORMATION
  Report Type: Report from Study
  Country: US (occurrence: US)
  Receive Date: 20151015
  Receipt Date: 20151015
  Transmission Date: 20160304
  Serious: No
  Sender: FDA-Public Use
  Company Number: US-AMGEN-USASL2015106972

PATIENT
  Age: 63 Year
  Sex: Female

DRUGS (1)
  1. ENBREL [Suspect]
     Active Substance: ETANERCEPT
     Indication: RHEUMATOID ARTHRITIS
     Dosage: (2) 25 MG, FOR A TOTAL OF 50 MG WEEKLY
     Route: 065
     Dates: start: 2003

REACTIONS (4)
  - Nasopharyngitis [Recovering/Resolving]
  - Drug dose omission [Unknown]
  - Viral infection [Recovering/Resolving]
  - Injection site pain [Unknown]

NARRATIVE: CASE EVENT DATE: 2015
